FAERS Safety Report 6252015-9 (Version None)
Quarter: 2009Q2

REPORT INFORMATION
  Report Type: 
  Country: None (occurrence: None)
  Receive Date: 20090630
  Receipt Date: 20050819
  Transmission Date: 20091009
  Serious: Yes (Hospitalization)
  Sender: FDA-Public Use
  Company Number: US-ROCHE-638467

PATIENT
  Sex: Male

DRUGS (10)
  1. ENFUVIRTIDE [Suspect]
     Route: 065
     Dates: start: 20041012, end: 20041109
  2. ENFUVIRTIDE [Suspect]
     Route: 065
     Dates: start: 20050201, end: 20070913
  3. EMTRIVA [Concomitant]
     Indication: ANTIRETROVIRAL THERAPY
     Dates: start: 20041012, end: 20041109
  4. EMTRIVA [Concomitant]
     Dates: start: 20050201, end: 20070913
  5. VIREAD [Concomitant]
     Indication: ANTIRETROVIRAL THERAPY
     Dates: start: 20041012, end: 20041109
  6. VIREAD [Concomitant]
     Dates: start: 20050201, end: 20070913
  7. ZERIT [Concomitant]
     Indication: ANTIRETROVIRAL THERAPY
     Dates: start: 20041012, end: 20041109
  8. ZERIT [Concomitant]
     Dates: start: 20050201, end: 20060502
  9. BACTRIM [Concomitant]
     Indication: ANTIBIOTIC THERAPY
     Dates: start: 19900101, end: 20070913
  10. DIFLUCAN [Concomitant]
     Indication: ANTIBIOTIC THERAPY
     Dates: start: 19940101, end: 20070913

REACTIONS (2)
  - HERNIA OBSTRUCTIVE [None]
  - INCISIONAL HERNIA [None]
